FAERS Safety Report 15360653 (Version 1)
Quarter: 2018Q3

REPORT INFORMATION
  Report Type: Spontaneous
  Country: US (occurrence: US)
  Receive Date: 20180907
  Receipt Date: 20180907
  Transmission Date: 20181010
  Serious: No
  Sender: FDA-Public Use
  Company Number: US-APOTEX-2018AP018565

PATIENT
  Age: 40 Year
  Sex: Female

DRUGS (2)
  1. FENTANYL TRANSDERMAL SYSTEM [Suspect]
     Active Substance: FENTANYL
     Indication: ANKYLOSING SPONDYLITIS
     Dosage: UNK
     Route: 062
     Dates: start: 20180505
  2. OTEZLA [Concomitant]
     Active Substance: APREMILAST
     Indication: ANTIINFLAMMATORY THERAPY
     Dosage: UNK
     Route: 065

REACTIONS (8)
  - Loss of personal independence in daily activities [Not Recovered/Not Resolved]
  - Rash [Not Recovered/Not Resolved]
  - Drug ineffective [Unknown]
  - Bedridden [Not Recovered/Not Resolved]
  - Product substitution issue [Unknown]
  - Blister [Not Recovered/Not Resolved]
  - Product quality issue [Unknown]
  - Product packaging issue [Unknown]

NARRATIVE: CASE EVENT DATE: 20180505
